FAERS Safety Report 7266335-2 (Version None)
Quarter: 2011Q1

REPORT INFORMATION
  Report Type: 
  Country: None (occurrence: None)
  Receive Date: 20110131
  Receipt Date: 20110124
  Transmission Date: 20110831
  Serious: Yes (Hospitalization)
  Sender: FDA-Public Use
  Company Number: US-SANOFI-AVENTIS-2011SA005701

PATIENT
  Age: 53 Year
  Sex: Male

DRUGS (5)
  1. MORPHINE [Concomitant]
     Indication: PAIN
  2. ALPRAZOLAM [Concomitant]
     Indication: ANXIETY
  3. LANTUS [Suspect]
     Dosage: 10-15 UNITS DAILY
     Route: 058
     Dates: start: 20070101
  4. MORPHINE [Concomitant]
  5. HUMALOG [Concomitant]
     Dosage: 5- 10 UNITS WITH MEALS
     Route: 058

REACTIONS (1)
  - CONSTIPATION [None]
